FAERS Safety Report 9734054 (Version 2)
Quarter: 2014Q2

REPORT INFORMATION
  Report Type: Spontaneous
  Country: US (occurrence: US)
  Receive Date: 20131205
  Receipt Date: 20140519
  Transmission Date: 20141212
  Serious: Yes (Life-Threatening, Disabling)
  Sender: FDA-Public Use
  Company Number: US-BAYER-2013-147396

PATIENT
  Age: 46 Year
  Sex: Female
  Weight: 119.27 kg

DRUGS (14)
  1. YASMIN [Suspect]
  2. YAZ [Suspect]
  3. OCELLA [Suspect]
  4. BEYAZ [Suspect]
  5. GIANVI [Suspect]
  6. SAFYRAL [Suspect]
  7. ZARAH [Suspect]
  8. PROPRANOLOL [Concomitant]
     Dosage: 20 MG, UNK
     Route: 048
     Dates: start: 20070402
  9. TRIAMCINOLONE ACETONIDE [Concomitant]
     Dosage: 0.1 %, UNK
     Route: 061
     Dates: start: 20070402, end: 20070604
  10. FAMOTIDINE [Concomitant]
     Dosage: 20 MG, BID
     Route: 048
     Dates: start: 20070402, end: 20070604
  11. PAROXETINE HYDROCHLORIDE [Concomitant]
     Dosage: 40 MG, EVERY NIGHT AT BEDTIME
     Route: 048
     Dates: start: 20070402, end: 20070604
  12. NAPROXEN [Concomitant]
     Indication: PAIN
     Dosage: 500 MG, PRN
     Route: 048
     Dates: start: 20070402, end: 20070604
  13. ALBUTEROL [Concomitant]
     Dosage: 90 UNK, MCG/ACTUATION, 2 PUFFS DAILY AS NEEDED
     Dates: start: 20070604
  14. QVAR [Concomitant]
     Dosage: 1 PUFF 2 TIMES DAILY
     Dates: start: 20070604

REACTIONS (8)
  - Deep vein thrombosis [None]
  - Injury [None]
  - Emotional distress [None]
  - Anhedonia [None]
  - Anxiety [None]
  - General physical health deterioration [None]
  - Pain [None]
  - Pain [None]
